FAERS Safety Report 6985739-6 (Version None)
Quarter: 2010Q3

REPORT INFORMATION
  Report Type: 
  Country: None (occurrence: None)
  Receive Date: 20100915
  Receipt Date: 20100903
  Transmission Date: 20110219
  Serious: Yes (Hospitalization)
  Sender: FDA-Public Use
  Company Number: US-ROCHE-725772

PATIENT
  Sex: Male
  Weight: 97.9 kg

DRUGS (15)
  1. BEVACIZUMAB [Suspect]
     Indication: GLIOBLASTOMA
     Route: 065
     Dates: start: 20100406, end: 20100518
  2. CARBOPLATIN [Suspect]
     Indication: GLIOBLASTOMA
     Dosage: DRUG NAME REPORTED AS CARBOPLATIN  AUC=4
     Route: 065
     Dates: start: 20100406, end: 20100504
  3. IRINOTECAN HCL [Suspect]
     Indication: GLIOBLASTOMA
     Route: 065
     Dates: start: 20100406, end: 20100518
  4. KEPPRA [Concomitant]
     Route: 065
  5. CELEXA [Concomitant]
     Route: 065
  6. OMEPRAZOLE [Concomitant]
     Route: 065
  7. DECADRON [Concomitant]
     Route: 065
  8. AMLODIPINE [Concomitant]
     Route: 065
  9. HYDROCHLOROTHIAZIDE [Concomitant]
     Route: 065
  10. LASIX [Concomitant]
     Route: 065
  11. NYSTATIN [Concomitant]
     Dosage: DRUG NAME REPORTED AS :NYSTATIN SWISH AND SWALLOW
     Route: 065
  12. BACTRIM [Concomitant]
     Route: 065
  13. DIFLUCAN [Concomitant]
     Route: 065
  14. POTASSIUM CHLORIDE [Concomitant]
     Route: 065
  15. MEGACE [Concomitant]
     Route: 065

REACTIONS (3)
  - DEHYDRATION [None]
  - FAILURE TO THRIVE [None]
  - MUCOSAL INFLAMMATION [None]
